FAERS Safety Report 4316771-9 (Version None)
Quarter: 2004Q1

REPORT INFORMATION
  Report Type: 
  Country: None (occurrence: None)
  Receive Date: 20040311
  Receipt Date: 20040301
  Transmission Date: 20041129
  Serious: Yes (Hospitalization)
  Sender: FDA-Public Use
  Company Number: HQ4617611OCT2002

PATIENT
  Age: 32 Year
  Sex: Female

DRUGS (2)
  1. DIMETAPP [Suspect]
     Dosage: ORAL
     Route: 048
  2. TRIAMINIC SRT [Suspect]
     Dosage: ORAL
     Route: 048

REACTIONS (6)
  - APHASIA [None]
  - CEREBRAL HAEMORRHAGE [None]
  - COGNITIVE DISORDER [None]
  - HAEMORRHAGIC STROKE [None]
  - INJURY [None]
  - SPEECH DISORDER [None]
